FAERS Safety Report 16945004 (Version 12)
Quarter: 2025Q4

REPORT INFORMATION
  Report Type: Report from Study
  Country: EU (occurrence: EU)
  Receive Date: 20191022
  Receipt Date: 20251007
  Transmission Date: 20260118
  Serious: Yes (Other)
  Sender: ROCHE
  Company Number: EU-ROCHE-2437281

PATIENT
  Age: 49 Year
  Sex: Female
  Weight: 53.0 kg

DRUGS (9)
  1. OCREVUS [Suspect]
     Active Substance: OCRELIZUMAB
     Indication: Secondary progressive multiple sclerosis
     Route: 042
     Dates: start: 20180920, end: 20181004
  2. OCREVUS [Suspect]
     Active Substance: OCRELIZUMAB
     Dosage: MOST RECENT DOSE PRIOR TO AE 03/MAY/2021
     Route: 042
     Dates: start: 20190415
  3. KESIMPTA [Suspect]
     Active Substance: OFATUMUMAB
     Indication: Secondary progressive multiple sclerosis
     Dosage: MOST RECENT DOSE RECEIVED ON 14/FEB/2022
     Route: 065
     Dates: start: 20211108
  4. PREGABALIN [Concomitant]
     Active Substance: PREGABALIN
     Indication: Trigeminal neuralgia
     Route: 048
     Dates: start: 20211108
  5. PRIDINOL MESILATE [Concomitant]
     Active Substance: PRIDINOL MESILATE
     Indication: Muscle spasticity
     Route: 048
     Dates: start: 20210107
  6. TIZANIDINE [Concomitant]
     Active Substance: TIZANIDINE
     Indication: Muscle spasticity
     Route: 048
     Dates: start: 20190923
  7. DRONABINOL [Concomitant]
     Active Substance: DRONABINOL
     Indication: Muscle spasticity
     Route: 048
     Dates: start: 20200504
  8. NABIXIMOLS [Concomitant]
     Active Substance: NABIXIMOLS
     Indication: Muscle spasticity
     Route: 048
     Dates: start: 20191007, end: 20200415
  9. CARBAMAZEPINE [Concomitant]
     Active Substance: CARBAMAZEPINE
     Indication: Trigeminal neuralgia
     Route: 048
     Dates: start: 20211025

REACTIONS (5)
  - Urinary tract infection [Recovering/Resolving]
  - Urinary tract infection [Recovered/Resolved]
  - Respiratory failure [Recovering/Resolving]
  - Pneumonia [Recovered/Resolved]
  - Pneumonia [Recovering/Resolving]

NARRATIVE: CASE EVENT DATE: 20211125
